FAERS Safety Report 10172579 (Version 1)
Quarter: 2014Q2

REPORT INFORMATION
  Report Type: Spontaneous
  Country: US (occurrence: US)
  Receive Date: 20140515
  Receipt Date: 20140515
  Transmission Date: 20141212
  Serious: No
  Sender: FDA-Public Use
  Company Number: US-009507513-1405USA006617

PATIENT
  Age: 81 Year
  Sex: Male

DRUGS (2)
  1. PROSCAR [Suspect]
     Indication: PROSTATOMEGALY
     Dosage: 5 MG, QD
     Route: 048
     Dates: start: 201402
  2. BICALUTAMIDE [Concomitant]
     Dosage: UNK

REACTIONS (5)
  - Diarrhoea [Unknown]
  - Abdominal distension [Unknown]
  - Anger [Unknown]
  - Irritability [Unknown]
  - Libido decreased [Unknown]
